FAERS Safety Report 5303524-8 (Version None)
Quarter: 2007Q2

REPORT INFORMATION
  Report Type: 
  Country: None (occurrence: None)
  Receive Date: 20070420
  Receipt Date: 20070411
  Transmission Date: 20071010
  Serious: Yes (Hospitalization)
  Sender: FDA-Public Use
  Company Number: US-KINGPHARMUSA00001-K200700453

PATIENT

DRUGS (3)
  1. ALTACE [Suspect]
     Dosage: 10 MG, QD
     Route: 048
  2. LASILIX  /00032601/ [Suspect]
     Dosage: 20 MG, QD
     Route: 048
  3. LERCAN [Suspect]
     Dosage: 10 MG, QD
     Route: 048

REACTIONS (4)
  - CREATININE RENAL CLEARANCE DECREASED [None]
  - GAIT DISTURBANCE [None]
  - MALAISE [None]
  - TEMPERATURE INTOLERANCE [None]
